FAERS Safety Report 10125774 (Version 1)
Quarter: 2014Q2

REPORT INFORMATION
  Report Type: Spontaneous
  Country: IT (occurrence: IT)
  Receive Date: 20140425
  Receipt Date: 20140425
  Transmission Date: 20141212
  Serious: Yes (Hospitalization)
  Sender: FDA-Public Use
  Company Number: IT-ACTAVIS-2014-08091

PATIENT
  Age: 43 Year
  Sex: Male

DRUGS (1)
  1. DOCETAXEL (UNKNOWN) [Suspect]
     Indication: BREAST CANCER
     Dosage: 150 MG, CYCLICAL
     Route: 042
     Dates: start: 20140211, end: 20140326

REACTIONS (2)
  - Neutropenia [Recovered/Resolved]
  - Fungal infection [Recovered/Resolved]
